FAERS Safety Report 16059001 (Version 2)
Quarter: 2019Q2

REPORT INFORMATION
  Report Type: Spontaneous
  Country: DK (occurrence: DK)
  Receive Date: 20190311
  Receipt Date: 20190403
  Transmission Date: 20190711
  Serious: Yes (Hospitalization)
  Sender: FDA-Public Use
  Company Number: DK-TEVA-2019-DK-1021090

PATIENT
  Age: 81 Year
  Sex: Male

DRUGS (5)
  1. MAREVAN [Interacting]
     Active Substance: WARFARIN SODIUM
     Indication: ANTICOAGULANT THERAPY
     Dosage: DOSAGE: WEEKLY: 10-12 HRS. - EVENLY DISTRIBUTED AND BASED ON INR MEASUREMENTS.
     Route: 048
     Dates: start: 20150327
  2. FURIX (FUROSEMIDE) [Concomitant]
     Active Substance: FUROSEMIDE
     Indication: DIURETIC THERAPY
     Dosage: 80 MILLIGRAM DAILY;
     Route: 048
     Dates: start: 20160502
  3. KALEORID [Concomitant]
     Active Substance: POTASSIUM CHLORIDE
     Indication: MINERAL SUPPLEMENTATION
     Dosage: 1500 MILLIGRAM DAILY;
     Route: 048
     Dates: start: 20160502
  4. PREDNISOLON ^ACTAVIS^ [Suspect]
     Active Substance: PREDNISOLONE
     Indication: PAIN
     Dosage: DOSIS: 1,5 TBL DGL I 5 DAGE, 1 TBL. DGL. I F?LG. 3 DAGE, ? TBL. I F?LG. 3 DAGE, STYRKE: 25 MG.
     Route: 048
     Dates: start: 20180911, end: 20180920
  5. PANTOPRAZOL ^ACTAVIS^ [Concomitant]
     Active Substance: PANTOPRAZOLE SODIUM
     Indication: PROPHYLAXIS AGAINST GASTROINTESTINAL ULCER
     Dosage: 40 MILLIGRAM DAILY;
     Route: 048
     Dates: start: 20180917, end: 20180920

REACTIONS (2)
  - Diverticulum intestinal haemorrhagic [Recovered/Resolved]
  - Drug interaction [Unknown]

NARRATIVE: CASE EVENT DATE: 20180920
